FAERS Safety Report 22003026 (Version 3)
Quarter: 2023Q2

REPORT INFORMATION
  Report Type: Report from Study
  Country: US (occurrence: US)
  Receive Date: 20230217
  Receipt Date: 20230615
  Transmission Date: 20230722
  Serious: Yes (Hospitalization)
  Sender: FDA-Public Use
  Company Number: US-ETON PHARMACEUTICALS, INC-2023ETO000035

PATIENT

DRUGS (4)
  1. ALKINDI SPRINKLE [Suspect]
     Active Substance: HYDROCORTISONE
     Indication: Adrenal disorder
     Dosage: 1 MILLIGRAM, TID
     Route: 048
     Dates: start: 20220809
  2. ALKINDI SPRINKLE [Suspect]
     Active Substance: HYDROCORTISONE
     Dosage: 5 MILLIGRAM, DAILY (STRESS DOSE)
     Route: 048
     Dates: start: 202301, end: 2023
  3. ALKINDI SPRINKLE [Suspect]
     Active Substance: HYDROCORTISONE
     Dosage: 5 MILLIGRAM, DAILY (STRESS DOSE)
     Route: 048
     Dates: start: 202302, end: 20230208
  4. ALKINDI SPRINKLE [Suspect]
     Active Substance: HYDROCORTISONE
     Dosage: 1 MILLIGRAM, TID
     Route: 048
     Dates: start: 20220809

REACTIONS (2)
  - Furuncle [Recovered/Resolved]
  - Gastroenteritis viral [Recovered/Resolved]

NARRATIVE: CASE EVENT DATE: 20230101
